FAERS Safety Report 9182052 (Version 1)
Quarter: 2013Q1

REPORT INFORMATION
  Report Type: Spontaneous
  Country: US (occurrence: US)
  Receive Date: 20130322
  Receipt Date: 20130322
  Transmission Date: 20140127
  Serious: Yes (Other)
  Sender: FDA-Public Use
  Company Number: US-ELI_LILLY_AND_COMPANY-US201303005351

PATIENT
  Age: 40 Year
  Sex: Female

DRUGS (3)
  1. OLANZAPINE [Suspect]
     Indication: SCHIZOPHRENIA
  2. LORAZEPAM [Concomitant]
  3. NORTRIPTYLINE [Concomitant]

REACTIONS (1)
  - Brugada syndrome [Unknown]
